FAERS Safety Report 9958999 (Version 2)
Quarter: 2014Q1

REPORT INFORMATION
  Report Type: Report from Study
  Country: US (occurrence: US)
  Receive Date: 20140305
  Receipt Date: 20140305
  Transmission Date: 20141002
  Serious: No
  Sender: FDA-Public Use
  Company Number: US-ABBVIE-13P-163-1097781-00

PATIENT
  Age: 69 Year
  Sex: Male

DRUGS (11)
  1. HUMIRA [Suspect]
     Indication: COLITIS ULCERATIVE
     Dates: start: 20130313, end: 20130313
  2. HUMIRA [Suspect]
     Dates: start: 20130327, end: 20130327
  3. HUMIRA [Suspect]
  4. LIALDA [Concomitant]
     Indication: COLITIS ULCERATIVE
     Route: 048
  5. ACIPHEX [Concomitant]
     Indication: PRODUCT USED FOR UNKNOWN INDICATION
  6. ATIVAN [Concomitant]
     Indication: INSOMNIA
  7. MULTIVITAMIN [Concomitant]
     Indication: PRODUCT USED FOR UNKNOWN INDICATION
     Dosage: DAILY, WHEN HE REMEMBERS
  8. FLONASE [Concomitant]
     Indication: HYPERSENSITIVITY
     Dosage: ONCE IN A WHILE FOR MY ALLERGIES
  9. ZYRTEC [Concomitant]
     Indication: PRODUCT USED FOR UNKNOWN INDICATION
     Dosage: IN THE SUMMER, MIGHT TAKE ZYRTEC
  10. IBUPROFEN [Concomitant]
     Indication: BACK PAIN
     Dosage: PRN
  11. IBUPROFEN [Concomitant]
     Indication: ARTHRALGIA

REACTIONS (5)
  - Contusion [Unknown]
  - Frequent bowel movements [Not Recovered/Not Resolved]
  - Drug ineffective [Not Recovered/Not Resolved]
  - Injection site bruising [Unknown]
  - Colitis ulcerative [Unknown]
